FAERS Safety Report 7376518-9 (Version None)
Quarter: 2011Q1

REPORT INFORMATION
  Report Type: 
  Country: None (occurrence: None)
  Receive Date: 20110317
  Receipt Date: 20110307
  Transmission Date: 20110831
  Serious: No
  Sender: FDA-Public Use
  Company Number: 2011-00089

PATIENT
  Age: 53 Year
  Sex: Male
  Weight: 127.0072 kg

DRUGS (11)
  1. ZICAM ALLERGY RELIEF GEL SWABS [Suspect]
     Dosage: 1 DOSE ONLY
     Dates: start: 20110305, end: 20110305
  2. TYLENOL W/ CODEINE NO. 3 [Concomitant]
  3. PLAQUENIL [Concomitant]
  4. CPAP MACHINE USE [Concomitant]
  5. PLAVIX [Concomitant]
  6. METOPROLOL [Concomitant]
  7. VOLTAREN [Concomitant]
  8. TRILIPIX [Concomitant]
  9. LIPITOR [Concomitant]
  10. OMEPRAZOLE [Concomitant]
  11. ACETYLSALICYLIC ACID VICK'S SINUS SPRAY [Concomitant]

REACTIONS (4)
  - DYSGEUSIA [None]
  - RETCHING [None]
  - CHILLS [None]
  - PAROSMIA [None]
